FAERS Safety Report 18161353 (Version 1)
Quarter: 2020Q3

REPORT INFORMATION
  Report Type: Spontaneous
  Country: US (occurrence: US)
  Receive Date: 20200818
  Receipt Date: 20200818
  Transmission Date: 20201103
  Serious: No
  Sender: FDA-Public Use
  Company Number: US-BAYER-2020-168996

PATIENT
  Age: 72 Year
  Sex: Male
  Weight: 70.3 kg

DRUGS (13)
  1. RYTARY [Concomitant]
     Active Substance: CARBIDOPA\LEVODOPA
     Dosage: 23.7 UNK
  2. NOURIANZ [Concomitant]
     Active Substance: ISTRADEFYLLINE
  3. MIRALAX [Suspect]
     Active Substance: POLYETHYLENE GLYCOL 3350
  4. BAYER LOW DOSE [Concomitant]
     Active Substance: ASPIRIN
  5. BELSOMRA [Concomitant]
     Active Substance: SUVOREXANT
  6. PRAMIPEXOLE. [Concomitant]
     Active Substance: PRAMIPEXOLE
     Dosage: 25 MG
  7. BUMETANIDE. [Concomitant]
     Active Substance: BUMETANIDE
  8. POTASSIUM CHLORIDE. [Concomitant]
     Active Substance: POTASSIUM CHLORIDE
  9. PIMAVANSERIN TARTRATE [Concomitant]
     Active Substance: PIMAVANSERIN TARTRATE
     Dosage: 34 MG
  10. MELATONIN [Concomitant]
     Active Substance: MELATONIN
     Indication: INSOMNIA
     Dosage: UNK
     Dates: start: 20200213
  11. MEMANTINE. [Concomitant]
     Active Substance: MEMANTINE
  12. RIVASTIGMINE. [Concomitant]
     Active Substance: RIVASTIGMINE
     Dosage: 1.5 MG
  13. RYTARY [Concomitant]
     Active Substance: CARBIDOPA\LEVODOPA
     Dosage: 95 MG
     Dates: end: 20191120

REACTIONS (1)
  - Anal incontinence [Unknown]
